FAERS Safety Report 6857096-7 (Version None)
Quarter: 2010Q3

REPORT INFORMATION
  Report Type: 
  Country: None (occurrence: None)
  Receive Date: 20100719
  Receipt Date: 20100712
  Transmission Date: 20110219
  Serious: Yes (Hospitalization)
  Sender: FDA-Public Use
  Company Number: B0587488A

PATIENT
  Sex: Female
  Weight: 70 kg

DRUGS (6)
  1. LAPATINIB [Suspect]
     Indication: BREAST CANCER
     Dosage: 1250MG PER DAY
     Route: 048
     Dates: start: 20090716
  2. EPIRUBICIN [Suspect]
     Indication: BREAST CANCER
     Dosage: 154MG EVERY 3 WEEKS
     Route: 042
     Dates: start: 20090716
  3. CYCLOPHOSPHAMIDE [Suspect]
     Indication: BREAST CANCER
     Dosage: 1026MG EVERY 3 WEEKS
     Route: 042
     Dates: start: 20090716
  4. EMEND [Concomitant]
     Dates: start: 20090716, end: 20090718
  5. NAVOBAN [Concomitant]
     Dosage: 5MG PER DAY
     Dates: start: 20090716, end: 20090716
  6. FORTECORTIN [Concomitant]
     Dosage: 12MG PER DAY
     Dates: start: 20090716, end: 20090718

REACTIONS (3)
  - MUCOSAL INFLAMMATION [None]
  - PHARYNGITIS [None]
  - TONSILLITIS [None]
